FAERS Safety Report 5966548-3 (Version None)
Quarter: 2008Q4

REPORT INFORMATION
  Report Type: 
  Country: None (occurrence: None)
  Receive Date: 20081125
  Receipt Date: 20081112
  Transmission Date: 20090506
  Serious: Yes (Hospitalization)
  Sender: FDA-Public Use
  Company Number: US-ASTRAZENECA-2008UW26106

PATIENT

DRUGS (1)
  1. SYMBICORT [Suspect]
     Route: 055

REACTIONS (1)
  - RESPIRATORY DISTRESS [None]
